FAERS Safety Report 4626004-1 (Version None)
Quarter: 2005Q1

REPORT INFORMATION
  Report Type: 
  Country: None (occurrence: None)
  Receive Date: 20050330
  Receipt Date: 20050315
  Transmission Date: 20050727
  Serious: Yes (Other)
  Sender: FDA-Public Use
  Company Number: USA050393236

PATIENT
  Age: 73 Year
  Sex: Male
  Weight: 95 kg

DRUGS (2)
  1. HUMULIN R [Suspect]
     Indication: DIABETES MELLITUS INSULIN-DEPENDENT
     Dosage: 24 U DAY
  2. HUMULIN L [Suspect]
     Indication: DIABETES MELLITUS INSULIN-DEPENDENT
     Dosage: 50 U DAY

REACTIONS (5)
  - BLINDNESS UNILATERAL [None]
  - DIABETIC RETINOPATHY [None]
  - EYE HAEMORRHAGE [None]
  - MACULAR DEGENERATION [None]
  - VISUAL FIELD DEFECT [None]
